FAERS Safety Report 8165535-7 (Version None)
Quarter: 2012Q1

REPORT INFORMATION
  Report Type: 
  Country: None (occurrence: None)
  Receive Date: 20120227
  Receipt Date: 20120215
  Transmission Date: 20120608
  Serious: Yes (Hospitalization, Other)
  Sender: FDA-Public Use
  Company Number: CN-SANOFI-AVENTIS-2012SA010685

PATIENT
  Age: 62 Year
  Sex: Female
  Weight: 54 kg

DRUGS (5)
  1. MECOBALAMIN [Concomitant]
     Indication: DIABETIC NEUROPATHY
     Dates: start: 20111001, end: 20120131
  2. HUMALOG [Suspect]
     Dosage: DOSE:21 UNIT(S)
     Route: 058
     Dates: start: 20120105, end: 20120131
  3. INSULIN GLARGINE [Suspect]
     Dosage: DOSE:20 UNIT(S)
     Route: 058
     Dates: start: 20120105, end: 20120130
  4. SOLOSTAR [Suspect]
     Dates: start: 20120105, end: 20120130
  5. METFORMIN HCL [Concomitant]
     Dates: start: 20090101, end: 20120131

REACTIONS (1)
  - MYOCARDIAL INFARCTION [None]
